FAERS Safety Report 21080126 (Version 4)
Quarter: 2023Q2

REPORT INFORMATION
  Report Type: Spontaneous
  Country: US (occurrence: US)
  Receive Date: 20220714
  Receipt Date: 20230502
  Transmission Date: 20230722
  Serious: Yes (Hospitalization)
  Sender: FDA-Public Use
  Company Number: US-SA-SAC20220713000245

PATIENT
  Sex: Male

DRUGS (43)
  1. DUPIXENT [Suspect]
     Active Substance: DUPILUMAB
     Indication: Asthma
     Dosage: 300 MG, QOW
     Route: 058
     Dates: start: 20211210
  2. AZELASTINE [Concomitant]
     Active Substance: AZELASTINE
     Dosage: UNK
  3. AZELASTINE [Concomitant]
     Active Substance: AZELASTINE
  4. AZELASTINE [Concomitant]
     Active Substance: AZELASTINE
  5. BREO ELLIPTA [Concomitant]
     Active Substance: FLUTICASONE FUROATE\VILANTEROL TRIFENATATE
     Dosage: UNK (BREO ELLIPTA INH 200-25)
     Route: 055
  6. BREO ELLIPTA [Concomitant]
     Active Substance: FLUTICASONE FUROATE\VILANTEROL TRIFENATATE
  7. EPINEPHRINE [Concomitant]
     Active Substance: EPINEPHRINE
     Dosage: UNK
  8. EPINEPHRINE [Concomitant]
     Active Substance: EPINEPHRINE
  9. FAMOTIDINE [Concomitant]
     Active Substance: FAMOTIDINE
     Dosage: UNK
  10. FAMOTIDINE [Concomitant]
     Active Substance: FAMOTIDINE
  11. FLONASE ALLERGY RELIEF [Concomitant]
     Active Substance: FLUTICASONE PROPIONATE
     Dosage: UNK
  12. FLONASE ALLERGY RELIEF [Concomitant]
     Active Substance: FLUTICASONE PROPIONATE
  13. INCRUSE ELLIPTA [Concomitant]
     Active Substance: UMECLIDINIUM BROMIDE
     Dosage: UNK
     Route: 055
  14. INCRUSE ELLIPTA [Concomitant]
     Active Substance: UMECLIDINIUM BROMIDE
  15. IPRATROPIUM [Concomitant]
     Active Substance: IPRATROPIUM
     Dosage: UNK
  16. IPRATROPIUM [Concomitant]
     Active Substance: IPRATROPIUM
  17. IVERMECTIN [Concomitant]
     Active Substance: IVERMECTIN
     Dosage: UNK
  18. IVERMECTIN [Concomitant]
     Active Substance: IVERMECTIN
  19. MONTELUKAST SODIUM [Concomitant]
     Active Substance: MONTELUKAST SODIUM
     Dosage: UNK
  20. PREDNISONE [Concomitant]
     Active Substance: PREDNISONE
     Dosage: UNK
  21. PREDNISONE [Concomitant]
     Active Substance: PREDNISONE
  22. PROAIR DIGIHALER [Concomitant]
     Active Substance: ALBUTEROL SULFATE
     Dosage: UNK (PROAIR DIGIH AER)
  23. PROAIR DIGIHALER [Concomitant]
     Active Substance: ALBUTEROL SULFATE
  24. TRELEGY ELLIPTA [Concomitant]
     Active Substance: FLUTICASONE FUROATE\UMECLIDINIUM BROMIDE\VILANTEROL TRIFENATATE
     Dosage: UNK
  25. TRELEGY ELLIPTA [Concomitant]
     Active Substance: FLUTICASONE FUROATE\UMECLIDINIUM BROMIDE\VILANTEROL TRIFENATATE
  26. XHANCE [Concomitant]
     Active Substance: FLUTICASONE PROPIONATE
     Dosage: UNK
  27. XHANCE [Concomitant]
     Active Substance: FLUTICASONE PROPIONATE
  28. FISH OIL [Concomitant]
     Active Substance: FISH OIL
     Dosage: UNK
  29. ENZYME DIGEST [Concomitant]
     Dosage: UNK
  30. ENZYME DIGEST [Concomitant]
  31. ACETYLCYSTEINE [Concomitant]
     Active Substance: ACETYLCYSTEINE
  32. ACETAMINOPHEN\OXYCODONE HYDROCHLORIDE [Concomitant]
     Active Substance: ACETAMINOPHEN\OXYCODONE HYDROCHLORIDE
     Dosage: UNK (TAB 5-325MG)
  33. QVAR REDIHALER [Concomitant]
     Active Substance: BECLOMETHASONE DIPROPIONATE
     Dosage: UNK
  34. QVAR REDIHALER [Concomitant]
     Active Substance: BECLOMETHASONE DIPROPIONATE
  35. NAC [DICLOFENAC SODIUM] [Concomitant]
     Dosage: UNK
  36. MOMETASONE FUROATE [Concomitant]
     Active Substance: MOMETASONE FUROATE
     Dosage: UNK
  37. OMEGA-3 FATTY ACIDS [Concomitant]
     Active Substance: OMEGA-3 FATTY ACIDS
     Dosage: UNK
  38. PROAIR RESPICLICK [Concomitant]
     Active Substance: ALBUTEROL SULFATE
  39. PROAIR RESPICLICK [Concomitant]
     Active Substance: ALBUTEROL SULFATE
  40. MONTELUKAST [Concomitant]
     Active Substance: MONTELUKAST SODIUM
  41. MONTELUKAST [Concomitant]
     Active Substance: MONTELUKAST SODIUM
  42. PNEUMOVAX 23 [Concomitant]
     Active Substance: PNEUMOCOCCAL VACCINE, POLYVALENT 23
     Indication: Immunisation
  43. PNEUMOVAX 23 [Concomitant]
     Active Substance: PNEUMOCOCCAL VACCINE, POLYVALENT 23

REACTIONS (3)
  - Impaired quality of life [Not Recovered/Not Resolved]
  - Vascular operation [Unknown]
  - Injection site pruritus [Not Recovered/Not Resolved]
